FAERS Safety Report 6270827-2 (Version None)
Quarter: 2009Q3

REPORT INFORMATION
  Report Type: 
  Country: None (occurrence: None)
  Receive Date: 20090716
  Receipt Date: 20090706
  Transmission Date: 20100115
  Serious: Yes (Hospitalization)
  Sender: FDA-Public Use
  Company Number: PHHY2009FR25874

PATIENT
  Sex: Female

DRUGS (8)
  1. GLEEVEC [Suspect]
     Indication: CHRONIC MYELOID LEUKAEMIA
     Dosage: 400 MG DAILY
     Dates: start: 20080518, end: 20090515
  2. LEVOTHYROX [Concomitant]
     Indication: HYPOTHYROIDISM
     Dosage: 25 UG, QD
  3. LEVOTHYROX [Concomitant]
     Dosage: 25 MG, QD
  4. PLAVIX [Concomitant]
     Indication: ATRIAL FIBRILLATION
     Dosage: 75 MG/DAY
     Dates: start: 20040101, end: 20090501
  5. AMIODARONE HCL [Concomitant]
     Indication: ATRIAL FIBRILLATION
     Dosage: 200 MG/DAY
     Dates: start: 20040101
  6. TRIATEC [Concomitant]
     Indication: HYPERTENSION
     Dosage: 2.5 MG/DAY
     Dates: start: 20040101
  7. LAROXYL [Concomitant]
     Indication: DEPRESSION
     Dosage: 25 MG/DAY
     Dates: start: 20090301
  8. DIGOXIN [Concomitant]
     Dosage: 25 UG, QD
     Route: 048
     Dates: start: 20090420

REACTIONS (18)
  - ARRHYTHMIA [None]
  - ATRIAL FIBRILLATION [None]
  - BRAIN NATRIURETIC PEPTIDE INCREASED [None]
  - C-REACTIVE PROTEIN INCREASED [None]
  - CHEST PAIN [None]
  - COUGH [None]
  - DYSPNOEA [None]
  - EXERCISE TOLERANCE DECREASED [None]
  - FATIGUE [None]
  - INFLAMMATION [None]
  - PERICARDIAL EFFUSION [None]
  - PERICARDITIS TUBERCULOUS [None]
  - PLEURAL EFFUSION [None]
  - PYREXIA [None]
  - RED BLOOD CELL SEDIMENTATION RATE INCREASED [None]
  - RESPIRATORY FREMITUS [None]
  - RESPIRATORY TRACT INFECTION [None]
  - STAPHYLOCOCCAL INFECTION [None]
